FAERS Safety Report 11909708 (Version 1)
Quarter: 2016Q1

REPORT INFORMATION
  Report Type: Spontaneous
  Country: US (occurrence: None)
  Receive Date: 20160111
  Receipt Date: 20160111
  Transmission Date: 20160526
  Serious: Yes (Life-Threatening, Hospitalization, Disabling)
  Sender: FDA-Public Use
  Company Number: None

PATIENT
  Age: 20 Year
  Sex: Male
  Weight: 74.84 kg

DRUGS (2)
  1. ZYPREXA [Concomitant]
     Active Substance: OLANZAPINE
  2. LEVETIRACETAM 1000MG NORTHSTAR [Suspect]
     Active Substance: LEVETIRACETAM
     Indication: POSTOPERATIVE CARE
     Route: 048

REACTIONS (5)
  - Psychotic disorder [None]
  - Delirium [None]
  - Screaming [None]
  - Insomnia [None]
  - Contraindication to medical treatment [None]

NARRATIVE: CASE EVENT DATE: 20160102
